FAERS Safety Report 15455167 (Version 1)
Quarter: 2018Q3

REPORT INFORMATION
  Report Type: Spontaneous
  Country: US (occurrence: US)
  Receive Date: 20180928
  Receipt Date: 20180928
  Transmission Date: 20181010
  Serious: Yes (Hospitalization)
  Sender: FDA-Public Use
  Company Number: None

PATIENT
  Sex: Female

DRUGS (7)
  1. ADVAIR DISK 100/50 [Concomitant]
  2. FLONASE 0.05% [Concomitant]
  3. PULMOZYME [Suspect]
     Active Substance: DORNASE ALFA
     Indication: CYSTIC FIBROSIS
     Route: 048
     Dates: start: 20150529
  4. ALBUTEROL 90MCG [Concomitant]
  5. NEURONTIN 100MG [Concomitant]
  6. ULTRASE MT12 [Concomitant]
  7. VALTREX 1G [Concomitant]

REACTIONS (2)
  - Neuralgia [None]
  - Drug dose omission [None]
